FAERS Safety Report 9527621 (Version 1)
Quarter: 2013Q1

REPORT INFORMATION
  Report Type: Spontaneous
  Country: US (occurrence: None)
  Receive Date: 20130313
  Receipt Date: 20130313
  Transmission Date: 20140127
  Serious: Yes (Other)
  Sender: FDA-Public Use
  Company Number: 1000039392

PATIENT
  Age: 53 Year
  Sex: Female

DRUGS (6)
  1. SAVELLA [Suspect]
     Indication: FIBROMYALGIA
     Dosage: 12.5 MG, 1 IN 1 D
     Dates: start: 201208, end: 201208
  2. SAVELLA [Suspect]
     Indication: FIBROMYALGIA
     Dosage: 50 MG, 2 IN 1 D
     Dates: start: 2012, end: 201210
  3. SAVELLA [Suspect]
     Indication: FIBROMYALGIA
     Dosage: 50 MG, 2 IN 1 D
     Dates: start: 20121009
  4. NORVASC [Concomitant]
  5. BYSTOLIC [Concomitant]
  6. LASIX [Concomitant]

REACTIONS (1)
  - Blood pressure increased [None]
